FAERS Safety Report 18551492 (Version 3)
Quarter: 2021Q1

REPORT INFORMATION
  Report Type: Report from Study
  Country: IT (occurrence: IT)
  Receive Date: 20201126
  Receipt Date: 20210129
  Transmission Date: 20210419
  Serious: Yes (Life-Threatening, Hospitalization)
  Sender: FDA-Public Use
  Company Number: PHHO2018IT013335

PATIENT
  Age: 64 Year
  Sex: Male
  Weight: 77 kg

DRUGS (3)
  1. MIDOSTAURIN [Suspect]
     Active Substance: MIDOSTAURIN
     Indication: ACUTE MYELOID LEUKAEMIA
     Dosage: UNK
     Route: 048
     Dates: start: 20181205
  2. COMPARATOR CYTARABINE [Suspect]
     Active Substance: CYTARABINE
     Indication: ACUTE MYELOID LEUKAEMIA
     Dosage: 200 MG/M2, BID
     Route: 042
     Dates: start: 20181128
  3. COMPARATOR DAUNORUBICIN [Suspect]
     Active Substance: DAUNORUBICIN
     Indication: ACUTE MYELOID LEUKAEMIA
     Dosage: 60 MG/M2, CONT
     Route: 042
     Dates: start: 20181128

REACTIONS (7)
  - Pneumonia [Not Recovered/Not Resolved]
  - Pyrexia [Recovered/Resolved]
  - Enterococcal sepsis [Recovered/Resolved]
  - Proctalgia [Not Recovered/Not Resolved]
  - Respiratory failure [Recovered/Resolved]
  - Aplasia [Recovered/Resolved]
  - Hypotension [Not Recovered/Not Resolved]

NARRATIVE: CASE EVENT DATE: 20181211
